FAERS Safety Report 21383809 (Version 2)
Quarter: 2022Q4

REPORT INFORMATION
  Report Type: Spontaneous
  Country: JP (occurrence: JP)
  Receive Date: 20220928
  Receipt Date: 20221031
  Transmission Date: 20230113
  Serious: Yes (Hospitalization, Other)
  Sender: FDA-Public Use
  Company Number: JP-BRISTOL-MYERS SQUIBB COMPANY-2022-105600

PATIENT
  Age: 71 Year
  Sex: Female

DRUGS (2)
  1. IPILIMUMAB [Suspect]
     Active Substance: IPILIMUMAB
     Indication: Lung neoplasm malignant
     Route: 041
  2. NIVOLUMAB [Suspect]
     Active Substance: NIVOLUMAB
     Indication: Lung neoplasm malignant
     Route: 041

REACTIONS (4)
  - Liver disorder [Not Recovered/Not Resolved]
  - Non-small cell lung cancer [Unknown]
  - Loss of personal independence in daily activities [Unknown]
  - Performance status decreased [Unknown]

NARRATIVE: CASE EVENT DATE: 20220906
